FAERS Safety Report 10683929 (Version 2)
Quarter: 2014Q4

REPORT INFORMATION
  Report Type: Spontaneous
  Country: US (occurrence: US)
  Receive Date: 20141230
  Receipt Date: 20141230
  Transmission Date: 20150529
  Serious: No
  Sender: FDA-Public Use
  Company Number: US-GLAXOSMITHKLINE-A1083852A

PATIENT
  Sex: Male
  Weight: 111 kg

DRUGS (16)
  1. SORIATANE [Suspect]
     Active Substance: ACITRETIN
     Indication: PSORIASIS
     Route: 048
  2. CARVEDILOL. [Concomitant]
     Active Substance: CARVEDILOL
  3. LASIX [Concomitant]
     Active Substance: FUROSEMIDE
  4. SYNTHROID [Concomitant]
     Active Substance: LEVOTHYROXINE SODIUM
  5. TRIAMCINOLONE CREAM [Concomitant]
  6. ISOSORBIDE MONONITRATE. [Concomitant]
     Active Substance: ISOSORBIDE MONONITRATE
  7. GLIPIZIDE. [Concomitant]
     Active Substance: GLIPIZIDE
  8. CETIRIZINE [Concomitant]
     Active Substance: CETIRIZINE HYDROCHLORIDE
  9. PLAVIX [Concomitant]
     Active Substance: CLOPIDOGREL BISULFATE
  10. LORATADINE. [Concomitant]
     Active Substance: LORATADINE
  11. PRAVASTATIN [Concomitant]
     Active Substance: PRAVASTATIN\PRAVASTATIN SODIUM
  12. TRILIPIX [Concomitant]
     Active Substance: FENOFIBRIC ACID
  13. CENTRUM SILVER [Concomitant]
     Active Substance: VITAMINS
  14. TORSEMIDE. [Concomitant]
     Active Substance: TORSEMIDE
  15. IMDUR [Concomitant]
     Active Substance: ISOSORBIDE MONONITRATE
  16. ASPIRIN. [Concomitant]
     Active Substance: ASPIRIN

REACTIONS (1)
  - Psoriasis [Recovering/Resolving]
